FAERS Safety Report 9116538 (Version 2)
Quarter: 2013Q2

REPORT INFORMATION
  Report Type: Spontaneous
  Country: US (occurrence: US)
  Receive Date: 20130225
  Receipt Date: 20130402
  Transmission Date: 20140414
  Serious: No
  Sender: FDA-Public Use
  Company Number: US-TEVA-387992USA

PATIENT
  Sex: Female

DRUGS (6)
  1. NUVIGIL [Suspect]
     Indication: SOMNOLENCE
  2. CELEBREX [Concomitant]
  3. CYMBALTA [Concomitant]
     Indication: DEPRESSION
  4. SYNTHROID [Concomitant]
     Indication: HYPOTHYROIDISM
  5. LISINOPRIL [Concomitant]
  6. MULTIVITAMINS [Concomitant]

REACTIONS (8)
  - Paraesthesia [Unknown]
  - Speech disorder [Unknown]
  - Feeling abnormal [Unknown]
  - Overdose [Unknown]
  - Diarrhoea [Unknown]
  - Dizziness [Unknown]
  - Heart rate abnormal [Unknown]
  - Off label use [Unknown]
